FAERS Safety Report 6545243-6 (Version None)
Quarter: 2010Q1

REPORT INFORMATION
  Report Type: 
  Country: None (occurrence: None)
  Receive Date: 20100121
  Receipt Date: 20091103
  Transmission Date: 20100710
  Serious: Yes (Other)
  Sender: FDA-Public Use
  Company Number: US-KINGPHARMUSA00001-K200901384

PATIENT
  Sex: Male

DRUGS (1)
  1. EPIPEN JR. [Suspect]
     Dosage: 0.15 MG, SINGLE
     Dates: start: 20091103, end: 20091103

REACTIONS (4)
  - ACCIDENTAL EXPOSURE [None]
  - INJECTION SITE PALLOR [None]
  - TACHYCARDIA [None]
  - TACHYPNOEA [None]
